FAERS Safety Report 16287127 (Version 2)
Quarter: 2019Q2

REPORT INFORMATION
  Report Type: Spontaneous
  Country: CZ (occurrence: CZ)
  Receive Date: 20190508
  Receipt Date: 20190601
  Transmission Date: 20190711
  Serious: Yes (Death, Life-Threatening, Other)
  Sender: FDA-Public Use
  Company Number: CZ-BRISTOL-MYERS SQUIBB COMPANY-BMS-2019-044603

PATIENT
  Age: 64 Year
  Sex: Male
  Weight: 132 kg

DRUGS (2)
  1. OPDIVO [Suspect]
     Active Substance: NIVOLUMAB
     Indication: MALIGNANT MELANOMA
     Dosage: 405 MILLIGRAM, Q2WK
     Route: 065
     Dates: start: 201711, end: 201804
  2. DACARBAZINE. [Suspect]
     Active Substance: DACARBAZINE
     Indication: MALIGNANT MELANOMA
     Dosage: UNK
     Route: 065
     Dates: start: 201807

REACTIONS (10)
  - Vomiting [Unknown]
  - Chronic obstructive pulmonary disease [Fatal]
  - Gait disturbance [Unknown]
  - Corona virus infection [Unknown]
  - Diarrhoea [Unknown]
  - Septic shock [Unknown]
  - Pruritus generalised [Unknown]
  - Immune-mediated hepatitis [Unknown]
  - Acute respiratory failure [Unknown]
  - Multiple organ dysfunction syndrome [Unknown]
